FAERS Safety Report 9049653 (Version 2)
Quarter: 2013Q2

REPORT INFORMATION
  Report Type: Spontaneous
  Country: US (occurrence: US)
  Receive Date: 20130205
  Receipt Date: 20130528
  Transmission Date: 20140414
  Serious: Yes (Other)
  Sender: FDA-Public Use
  Company Number: US-ELI_LILLY_AND_COMPANY-US201301008912

PATIENT
  Age: 62 Year
  Sex: Female

DRUGS (2)
  1. FORTEO [Suspect]
     Indication: OSTEOPOROSIS
     Dosage: UNK, QD
     Dates: start: 20130110
  2. FORTEO [Suspect]
     Dosage: UNK, QD

REACTIONS (7)
  - Pancreatitis [Unknown]
  - Abdominal pain [Unknown]
  - Pain [Unknown]
  - Injection site bruising [Unknown]
  - Arthralgia [Unknown]
  - Groin pain [Unknown]
  - Incorrect storage of drug [Recovered/Resolved]
